FAERS Safety Report 9105106 (Version 1)
Quarter: 2013Q1

REPORT INFORMATION
  Report Type: Report from Study
  Country: US (occurrence: US)
  Receive Date: 20130220
  Receipt Date: 20130220
  Transmission Date: 20140127
  Serious: No
  Sender: FDA-Public Use
  Company Number: US-VERTEX PHARMACEUTICALS INC.-2013-002298

PATIENT
  Age: 62 Year
  Sex: Male
  Weight: 100 kg

DRUGS (9)
  1. VX-950 (TELAPREVIR) [Suspect]
     Indication: HEPATITIS C
     Dosage: 750 MG, TID
     Route: 048
     Dates: start: 20130211
  2. PEGASYS [Suspect]
     Indication: HEPATITIS C
     Dosage: 180 ?G, QW
     Route: 058
     Dates: start: 20130211
  3. RIBASPHERE [Suspect]
     Indication: HEPATITIS C
     Dosage: 600 MG, BID
     Route: 048
     Dates: start: 20130211
  4. FUROSEMIDE [Concomitant]
     Dosage: 40 MG, QD
  5. NADOLOL [Concomitant]
     Dosage: 20 MG, QD
     Route: 048
  6. SPIRONOLACTONE [Concomitant]
     Dosage: 25 MG, QD
     Route: 048
  7. MULTIVITAMIN [Concomitant]
     Dosage: 1 DF, QD
     Route: 048
  8. OMEPRAZOLE [Concomitant]
     Dosage: 20 MG, QD
  9. ALEVE [Concomitant]
     Dosage: 220 MG, QD

REACTIONS (2)
  - Faeces discoloured [Unknown]
  - Fatigue [Unknown]
